FAERS Safety Report 7469530-2 (Version None)
Quarter: 2011Q2

REPORT INFORMATION
  Report Type: 
  Country: None (occurrence: None)
  Receive Date: 20110510
  Receipt Date: 20110502
  Transmission Date: 20111010
  Serious: Yes (Other)
  Sender: FDA-Public Use
  Company Number: PHHY2011US37141

PATIENT
  Age: 95 Year
  Sex: Male

DRUGS (1)
  1. GENTEAL [Suspect]
     Dosage: UNK UKN, UNK
     Route: 047

REACTIONS (2)
  - HIP FRACTURE [None]
  - FALL [None]
